FAERS Safety Report 6186037-3 (Version None)
Quarter: 2009Q2

REPORT INFORMATION
  Report Type: 
  Country: None (occurrence: None)
  Receive Date: 20090511
  Receipt Date: 20090430
  Transmission Date: 20091009
  Serious: Yes (Death, Hospitalization, Other)
  Sender: FDA-Public Use
  Company Number: US-MERCK-0805USA00702

PATIENT
  Age: 73 Year
  Sex: Male
  Weight: 73 kg

DRUGS (2)
  1. FOSAMAX [Suspect]
     Indication: OSTEOPOROSIS
     Route: 048
     Dates: start: 20000101, end: 20060101
  2. FOSAMAX [Suspect]
     Route: 048
     Dates: start: 20000101, end: 20060101

REACTIONS (30)
  - ABDOMINAL PAIN [None]
  - ABNORMAL LOSS OF WEIGHT [None]
  - ACTINIC KERATOSIS [None]
  - ADVERSE DRUG REACTION [None]
  - ANXIETY [None]
  - ARTHROPATHY [None]
  - BALANCE DISORDER [None]
  - CARDIAC VALVE DISEASE [None]
  - CELLULITIS [None]
  - CHOLELITHIASIS [None]
  - CHRONIC SINUSITIS [None]
  - DEATH [None]
  - DEPRESSION [None]
  - FLATULENCE [None]
  - FUNGAL INFECTION [None]
  - GINGIVAL DISORDER [None]
  - GINGIVITIS [None]
  - HIATUS HERNIA [None]
  - HYPERLIPIDAEMIA [None]
  - JOINT DISLOCATION POSTOPERATIVE [None]
  - NASAL CAVITY CANCER [None]
  - NASAL SEPTUM PERFORATION [None]
  - OSTEOARTHRITIS [None]
  - OSTEONECROSIS [None]
  - OSTEORADIONECROSIS [None]
  - PANCREATITIS [None]
  - PARONYCHIA [None]
  - RENAL FAILURE [None]
  - RHEUMATOID ARTHRITIS [None]
  - SKELETAL INJURY [None]
